FAERS Safety Report 25261331 (Version 1)
Quarter: 2025Q2

REPORT INFORMATION
  Report Type: Spontaneous
  Country: CO (occurrence: CO)
  Receive Date: 20250501
  Receipt Date: 20250501
  Transmission Date: 20250716
  Serious: Yes (Hospitalization)
  Sender: BOEHRINGER INGELHEIM
  Company Number: CO-BoehringerIngelheim-2025-BI-025158

PATIENT
  Age: 65 Year
  Sex: Female
  Weight: 54 kg

DRUGS (1)
  1. OFEV [Suspect]
     Active Substance: NINTEDANIB
     Indication: Pulmonary fibrosis
     Dates: start: 202408

REACTIONS (4)
  - Oxygen saturation decreased [Unknown]
  - Respiratory failure [Unknown]
  - Cardiac failure [Unknown]
  - Organ failure [Unknown]

NARRATIVE: CASE EVENT DATE: 20250419
